FAERS Safety Report 7623855-6 (Version None)
Quarter: 2011Q3

REPORT INFORMATION
  Report Type: 
  Country: None (occurrence: None)
  Receive Date: 20110712
  Receipt Date: 20110704
  Transmission Date: 20111222
  Serious: Yes (Hospitalization)
  Sender: FDA-Public Use
  Company Number: AXC-2011-000245

PATIENT
  Age: 79 Year
  Sex: Male

DRUGS (4)
  1. VOGLIBOSE (VOGLIBOSE) [Concomitant]
  2. DIOVAN [Suspect]
     Indication: HYPERTENSION
     Dosage: 120 MG, QD, ORAL
     Route: 048
     Dates: start: 20090101, end: 20110518
  3. URIEF (SILODOSIN) [Concomitant]
  4. URSODIOL [Suspect]
     Indication: CHRONIC HEPATITIS
     Dosage: 600 MG, QD, ORAL; 600 MG, QD, ORAL
     Route: 048
     Dates: start: 20090101, end: 20110518

REACTIONS (4)
  - DECREASED APPETITE [None]
  - MALAISE [None]
  - INTERSTITIAL LUNG DISEASE [None]
  - COMPUTERISED TOMOGRAM ABNORMAL [None]
